FAERS Safety Report 6076878-5 (Version None)
Quarter: 2009Q1

REPORT INFORMATION
  Report Type: 
  Country: None (occurrence: None)
  Receive Date: 20090213
  Receipt Date: 20090204
  Transmission Date: 20090719
  Serious: Yes (Other)
  Sender: FDA-Public Use
  Company Number: HK-ASTRAZENECA-2009AC00552

PATIENT
  Age: 29 Year
  Sex: Female

DRUGS (5)
  1. LIDOCAINE [Suspect]
     Indication: CHEST DISCOMFORT
     Dates: start: 20061201
  2. LIDOCAINE [Suspect]
     Indication: DYSPEPSIA
     Dates: start: 20061201
  3. MUCIN [Concomitant]
     Indication: CHEST DISCOMFORT
     Dates: start: 20061201
  4. MUCIN [Concomitant]
     Indication: DYSPEPSIA
     Dates: start: 20061201
  5. DOXYCYCLINE [Concomitant]
     Indication: ACNE
     Dates: start: 20061201

REACTIONS (4)
  - AGITATION [None]
  - CONFUSIONAL STATE [None]
  - CONVULSION [None]
  - DRUG TOXICITY [None]
